FAERS Safety Report 12672241 (Version 1)
Quarter: 2016Q3

REPORT INFORMATION
  Report Type: Spontaneous
  Country: US (occurrence: US)
  Receive Date: 20160822
  Receipt Date: 20160822
  Transmission Date: 20161109
  Serious: No
  Sender: FDA-Public Use
  Company Number: US-PFIZER INC-2016378275

PATIENT
  Sex: Male

DRUGS (1)
  1. ALTACE [Suspect]
     Active Substance: RAMIPRIL

REACTIONS (2)
  - Urticaria [Unknown]
  - Hypersensitivity [Unknown]
